FAERS Safety Report 5227381-3 (Version None)
Quarter: 2007Q1

REPORT INFORMATION
  Report Type: 
  Country: None (occurrence: None)
  Receive Date: 20070202
  Receipt Date: 20070122
  Transmission Date: 20070707
  Serious: Yes (Hospitalization)
  Sender: FDA-Public Use
  Company Number: 2007AC00130

PATIENT
  Age: 40 Year
  Sex: Female

DRUGS (6)
  1. BUDESONIDE [Suspect]
     Indication: CROHN'S DISEASE
  2. BUDESONIDE [Suspect]
  3. 5-ASA [Concomitant]
  4. MESALAMINE [Concomitant]
     Dosage: STOPPED ON DAY OF ADMISSION
  5. CIPROFLOXACIN HCL [Concomitant]
     Indication: CROHN'S DISEASE
     Dosage: STARTED 13 DAYS PRIOR TO ADMISSION
  6. METRONIDAZOLE [Concomitant]
     Indication: CROHN'S DISEASE
     Dosage: STARTED 13 DAYS PRIOR TO ADMISSION

REACTIONS (1)
  - RHABDOMYOLYSIS [None]
